FAERS Safety Report 4433789-6 (Version None)
Quarter: 2004Q3

REPORT INFORMATION
  Report Type: 
  Country: None (occurrence: None)
  Receive Date: 20040824
  Receipt Date: 20040824
  Transmission Date: 20050211
  Serious: Yes (Other)
  Sender: FDA-Public Use
  Company Number: None

PATIENT
  Age: 28 Year
  Sex: Female
  Weight: 99.7913 kg

DRUGS (1)
  1. PAXIL [Suspect]
     Indication: PREMENSTRUAL SYNDROME
     Dosage: 37.5MGS  1XDAILY  ORAL
     Route: 048

REACTIONS (3)
  - DRUG WITHDRAWAL SYNDROME [None]
  - DYSPNOEA [None]
  - PALPITATIONS [None]
